FAERS Safety Report 13574386 (Version 4)
Quarter: 2021Q1

REPORT INFORMATION
  Report Type: Report from Study
  Country: PL (occurrence: PL)
  Receive Date: 20170523
  Receipt Date: 20210304
  Transmission Date: 20210419
  Serious: Yes (Other)
  Sender: FDA-Public Use
  Company Number: PL-AMGEN-POLCT2017076471

PATIENT
  Age: 74 Year
  Sex: Male
  Weight: 72 kg

DRUGS (9)
  1. HYDROCHLOROTHIAZIDE. [Concomitant]
     Active Substance: HYDROCHLOROTHIAZIDE
     Dosage: 12.5 MILLIGRAM
     Dates: start: 20140505
  2. EVOLOCUMAB [Suspect]
     Active Substance: EVOLOCUMAB
     Indication: DYSLIPIDAEMIA
     Dosage: 1 MILLILITER
     Route: 058
     Dates: start: 20160906
  3. ASPIRIN [ACETYLSALICYLIC ACID] [Concomitant]
     Active Substance: ASPIRIN
     Dosage: UNK
  4. FORMOTEROL [Concomitant]
     Active Substance: FORMOTEROL
     Dosage: 12 MICROGRAM
     Dates: start: 20140505
  5. ACARD [ACETYLSALICYLIC ACID] [Concomitant]
     Dosage: 75 MILLIGRAM
     Dates: start: 2010
  6. SOTALOL. [Concomitant]
     Active Substance: SOTALOL
     Dosage: 40 MILLIGRAM
     Dates: start: 20140505
  7. ATORVASTATIN [Concomitant]
     Active Substance: ATORVASTATIN
     Indication: DYSLIPIDAEMIA
     Dosage: 80 MILLIGRAM
     Dates: start: 20140505
  8. LOSARTANUM [Concomitant]
     Dosage: 50 MILLIGRAM
     Dates: start: 20140505
  9. BUDESONIDUM [Concomitant]
     Active Substance: BUDESONIDE
     Dosage: 200 MICROGRAM
     Dates: start: 20140505

REACTIONS (1)
  - Asthenia [Recovered/Resolved]

NARRATIVE: CASE EVENT DATE: 201701
